FAERS Safety Report 7118092-8 (Version None)
Quarter: 2010Q4

REPORT INFORMATION
  Report Type: 
  Country: None (occurrence: None)
  Receive Date: 20101123
  Receipt Date: 20101111
  Transmission Date: 20110411
  Serious: Yes (Hospitalization)
  Sender: FDA-Public Use
  Company Number: US-BAYER-201031724NA

PATIENT
  Age: 33 Year
  Sex: Female
  Weight: 73 kg

DRUGS (8)
  1. YASMIN [Suspect]
     Indication: PREMENSTRUAL SYNDROME
     Route: 048
     Dates: start: 20040101, end: 20080101
  2. YAZ [Suspect]
     Indication: PREMENSTRUAL SYNDROME
     Route: 048
     Dates: start: 20040101, end: 20080101
  3. INDERAL LA [Concomitant]
     Indication: HYPERTENSION
     Dates: start: 20050101
  4. METFORMIN HCL [Concomitant]
     Indication: UNEVALUABLE EVENT
     Dates: start: 20050101
  5. CELEXA [Concomitant]
     Indication: HYPERTENSION
     Dates: start: 20060101
  6. IBUPROFEN [Concomitant]
     Dates: start: 20050101, end: 20080101
  7. MOTRIN [Concomitant]
     Indication: PAIN
  8. NAPROXEN [Concomitant]

REACTIONS (3)
  - CHOLECYSTECTOMY [None]
  - PAIN [None]
  - RENAL INJURY [None]
